FAERS Safety Report 5660497-6 (Version None)
Quarter: 2008Q1

REPORT INFORMATION
  Report Type: 
  Country: None (occurrence: None)
  Receive Date: 20080306
  Receipt Date: 20080227
  Transmission Date: 20080703
  Serious: Yes (Death, Hospitalization, Other)
  Sender: FDA-Public Use
  Company Number: 2008SP003445

PATIENT
  Age: 96 Year
  Sex: Female

DRUGS (6)
  1. NITRO-DUR [Suspect]
     Indication: ISCHAEMIA
     Dosage: ;TDER
     Route: 062
     Dates: start: 20080129, end: 20080204
  2. TAVOR [Concomitant]
  3. DEURSIL [Concomitant]
  4. LASIX [Concomitant]
  5. TIENAM [Concomitant]
  6. ANTRA [Concomitant]

REACTIONS (6)
  - APPLICATION SITE BRUISING [None]
  - ARRHYTHMIA [None]
  - CARDIO-RESPIRATORY ARREST [None]
  - DERMATITIS BULLOUS [None]
  - PURPURA [None]
  - SUDDEN DEATH [None]
